FAERS Safety Report 9407116 (Version 1)
Quarter: 2013Q3

REPORT INFORMATION
  Report Type: Spontaneous
  Country: GB (occurrence: GB)
  Receive Date: 20130718
  Receipt Date: 20130718
  Transmission Date: 20140515
  Serious: Yes (Hospitalization, Other)
  Sender: FDA-Public Use
  Company Number: PHHY2013GB073653

PATIENT
  Age: 71 Year
  Sex: Male
  Weight: 92 kg

DRUGS (13)
  1. DIGOXIN [Suspect]
     Dosage: 250 UG, UNK
     Route: 048
  2. DIGOXIN [Suspect]
     Dosage: 125 UG, UNK
  3. DRONEDARONE [Suspect]
     Dosage: 400 MG, BID
  4. ALLOPURINOL [Concomitant]
     Dosage: 300 MG, QD
  5. FINASTERIDE [Concomitant]
     Dosage: 5 MG, QD
  6. GAVISCON ADVANCE [Concomitant]
     Dosage: 10 ML, PRN
  7. OMACOR [Concomitant]
     Dosage: 1000 MG, QD
  8. SANDO K [Concomitant]
     Dosage: 12 MMOL, BID
  9. CANDESARTAN [Concomitant]
     Dosage: 32 MG, QD
  10. SPIRONOLACTONE [Concomitant]
     Dosage: 5 MG, QD
  11. WARFARIN [Concomitant]
     Dosage: 3.75 MG (ACCORDING TO INTERNATIONAL NORMALISED RATIO), QD
  12. METFORMIN [Concomitant]
     Dosage: 500 MG, FOUR TIMES DAY
  13. ATORVASTATIN [Concomitant]
     Dosage: 40 MG, QD

REACTIONS (13)
  - Renal failure acute [Not Recovered/Not Resolved]
  - Oliguria [Recovering/Resolving]
  - Oedema [Recovering/Resolving]
  - Toxicity to various agents [Unknown]
  - Diarrhoea [Recovering/Resolving]
  - Dizziness [Unknown]
  - Nausea [Recovering/Resolving]
  - Abdominal pain [Recovering/Resolving]
  - Xanthopsia [Recovering/Resolving]
  - Weight increased [Recovering/Resolving]
  - Chromaturia [Recovering/Resolving]
  - Bradycardia [Recovering/Resolving]
  - Blood pressure decreased [Recovering/Resolving]
